FAERS Safety Report 22397303 (Version 2)
Quarter: 2023Q2

REPORT INFORMATION
  Report Type: Spontaneous
  Country: SE (occurrence: SE)
  Receive Date: 20230602
  Receipt Date: 20230605
  Transmission Date: 20230722
  Serious: Yes (Other)
  Sender: FDA-Public Use
  Company Number: None

PATIENT
  Age: 57 Year
  Sex: Male
  Weight: 105 kg

DRUGS (3)
  1. TREMFYA [Interacting]
     Active Substance: GUSELKUMAB
     Indication: Psoriatic arthropathy
     Dosage: 1 DOSE EVERY 8 WEEKS
     Route: 058
     Dates: start: 20200101
  2. AMOXICILLIN [Interacting]
     Active Substance: AMOXICILLIN
     Indication: Device related infection
     Dosage: 2 TABLETS 3 TIMES DAILY FOR 3 MONTHS
     Route: 048
     Dates: start: 20230325, end: 20230505
  3. OMEPRAZOLE [Concomitant]
     Active Substance: OMEPRAZOLE
     Route: 048
     Dates: start: 20050101

REACTIONS (2)
  - Ageusia [Recovering/Resolving]
  - Drug interaction [Recovering/Resolving]

NARRATIVE: CASE EVENT DATE: 20230501
